FAERS Safety Report 13719408 (Version 1)
Quarter: 2017Q3

REPORT INFORMATION
  Report Type: Spontaneous
  Country: FR (occurrence: FR)
  Receive Date: 20170705
  Receipt Date: 20170705
  Transmission Date: 20171127
  Serious: Yes (Other)
  Sender: FDA-Public Use
  Company Number: FR-BAYER-2017-127021

PATIENT
  Age: 30 Year
  Sex: Female

DRUGS (1)
  1. MIRENA [Suspect]
     Active Substance: LEVONORGESTREL
     Indication: PRODUCT USED FOR UNKNOWN INDICATION
     Dosage: 20 MCG/24HR, CONT
     Route: 015
     Dates: start: 20170106, end: 201704

REACTIONS (11)
  - Aggression [Recovering/Resolving]
  - Hypotension [Recovered/Resolved]
  - Weight increased [Not Recovered/Not Resolved]
  - Loss of libido [Unknown]
  - Abdominal distension [Recovering/Resolving]
  - Pruritus [Recovered/Resolved]
  - Menorrhagia [Recovered/Resolved]
  - Breast pain [Recovered/Resolved]
  - Uterine contractions abnormal [Unknown]
  - Nervousness [Recovering/Resolving]
  - Depression [Not Recovered/Not Resolved]

NARRATIVE: CASE EVENT DATE: 20170106
